FAERS Safety Report 13020619 (Version 3)
Quarter: 2017Q1

REPORT INFORMATION
  Report Type: Spontaneous
  Country: CH (occurrence: CH)
  Receive Date: 20161212
  Receipt Date: 20170105
  Transmission Date: 20170428
  Serious: Yes (Hospitalization, Other)
  Sender: FDA-Public Use
  Company Number: CH-ABBVIE-16P-151-1804247-00

PATIENT
  Age: 34 Year
  Sex: Female
  Weight: 54 kg

DRUGS (4)
  1. CYANOCOBALAMIN. [Concomitant]
     Active Substance: CYANOCOBALAMIN
     Indication: PRODUCT USED FOR UNKNOWN INDICATION
     Route: 065
  2. BUDENOFALK [Concomitant]
     Active Substance: BUDESONIDE
     Indication: PRODUCT USED FOR UNKNOWN INDICATION
     Route: 065
  3. HUMIRA [Suspect]
     Active Substance: ADALIMUMAB
     Indication: CROHN^S DISEASE
     Route: 058
     Dates: start: 20160406, end: 20160602
  4. ACIDUM FOLICUM [Concomitant]
     Active Substance: FOLIC ACID
     Indication: FOLATE DEFICIENCY

REACTIONS (7)
  - Endometrial hyperplasia [Unknown]
  - Lymphadenopathy [Recovered/Resolved]
  - Dermatitis acneiform [Recovering/Resolving]
  - Drug eruption [Recovering/Resolving]
  - Varicella virus test positive [Unknown]
  - Epstein-Barr virus antibody positive [Unknown]
  - Goitre [Recovered/Resolved]

NARRATIVE: CASE EVENT DATE: 2016
